FAERS Safety Report 7042027-X (Version None)
Quarter: 2010Q4

REPORT INFORMATION
  Report Type: 
  Country: None (occurrence: None)
  Receive Date: 20101013
  Receipt Date: 20091102
  Transmission Date: 20110411
  Serious: No
  Sender: FDA-Public Use
  Company Number: US-ASTRAZENECA-2009SE17804

PATIENT
  Sex: Male

DRUGS (1)
  1. SYMBICORT [Suspect]
     Indication: CHRONIC OBSTRUCTIVE PULMONARY DISEASE
     Dosage: 640 MCG DAILY DOSE, 160/4.5, 2 PUFFS BID
     Route: 055
     Dates: start: 20090527

REACTIONS (2)
  - DRUG INEFFECTIVE [None]
  - DYSPNOEA [None]
